FAERS Safety Report 5047711-5 (Version None)
Quarter: 2006Q2

REPORT INFORMATION
  Report Type: 
  Country: None (occurrence: None)
  Receive Date: 20060601
  Receipt Date: 20060207
  Transmission Date: 20061013
  Serious: No
  Sender: FDA-Public Use
  Company Number: US200602001530

PATIENT
  Sex: Female

DRUGS (2)
  1. CYMBALTA [Suspect]
     Indication: PAIN
     Dosage: SEE IMAGE
     Route: 048
     Dates: start: 20051201
  2. VICODIN [Concomitant]

REACTIONS (4)
  - BLISTER [None]
  - GINGIVAL RECESSION [None]
  - INSOMNIA [None]
  - YAWNING [None]
